FAERS Safety Report 9791680 (Version 2)
Quarter: 2014Q1

REPORT INFORMATION
  Report Type: Spontaneous
  Country: US (occurrence: US)
  Receive Date: 20140102
  Receipt Date: 20140307
  Transmission Date: 20141002
  Serious: No
  Sender: FDA-Public Use
  Company Number: US-009507513-1312USA009360

PATIENT
  Age: 65 Year
  Sex: Male

DRUGS (6)
  1. PEGINTRON [Suspect]
     Dosage: 120 MCG/0.5 ML ONCE A WEEK REDIPEN
     Route: 058
     Dates: start: 201310
  2. VICTRELIS [Suspect]
     Dosage: UNK
     Route: 048
     Dates: start: 201310
  3. RIBAPAK [Suspect]
     Dosage: 600 MG DAILY
     Dates: start: 201310
  4. RIBAPAK [Suspect]
     Dosage: 1200MG/DAY
     Route: 048
  5. LORATADINE [Concomitant]
     Route: 048
  6. REMERON [Concomitant]
     Route: 048

REACTIONS (3)
  - Red blood cell count decreased [Unknown]
  - Dysgeusia [Unknown]
  - Weight decreased [Unknown]
